FAERS Safety Report 4621679-5 (Version None)
Quarter: 2005Q1

REPORT INFORMATION
  Report Type: 
  Country: None (occurrence: None)
  Receive Date: 20050328
  Receipt Date: 20050315
  Transmission Date: 20050727
  Serious: Yes (Hospitalization, Other)
  Sender: FDA-Public Use
  Company Number: 2005045777

PATIENT
  Sex: Female
  Weight: 77.1115 kg

DRUGS (15)
  1. NEURONTIN [Suspect]
     Indication: NEURALGIA
     Dosage: 300 MG (100 MG, 3 IN 1 D)
  2. AMLODIPINE BESYLATE [Concomitant]
  3. VALSARTAN [Concomitant]
  4. CARBAMAZEPINE [Concomitant]
  5. LEVOTHYROXINE SODIUM [Concomitant]
  6. LANSOPRAZOLE [Concomitant]
  7. MONTELUKAST SODIUM (MONTELUKAST SODIUM) [Concomitant]
  8. CLINDAMYCIN (CLINDAMYCIN) [Concomitant]
  9. HYDROCODONE BITARTRATE [Concomitant]
  10. SERETIDE MITE (FLUTICASONE PROPIONATE, SALMETEROL XINAFOATE) [Concomitant]
  11. COMBIVENT [Concomitant]
  12. OXYCODONE HYDROCHLORIDE (OXYCODONE HYDROCHLORIDE) [Concomitant]
  13. CYCLOBENZAPRINE HCL [Concomitant]
  14. RISEDRONATE SODIUM (RISEDRONATE SODIUM) [Concomitant]
  15. TOLTERODINE TARTRATE [Concomitant]

REACTIONS (9)
  - BACK PAIN [None]
  - CATARACT OPERATION [None]
  - CONDITION AGGRAVATED [None]
  - DRUG EFFECT DECREASED [None]
  - EYE LASER SURGERY [None]
  - HERPES ZOSTER [None]
  - INTESTINAL OBSTRUCTION [None]
  - PAIN IN EXTREMITY [None]
  - RADICULOTOMY [None]
